FAERS Safety Report 21555736 (Version 1)
Quarter: 2022Q4

REPORT INFORMATION
  Report Type: Spontaneous
  Country: US (occurrence: None)
  Receive Date: 20221103
  Receipt Date: 20221103
  Transmission Date: 20230113
  Serious: Yes (Life-Threatening, Hospitalization)
  Sender: FDA-Public Use
  Company Number: None

PATIENT
  Age: 53 Year
  Sex: Female
  Weight: 62 kg

DRUGS (2)
  1. CARBOPLATIN [Suspect]
     Active Substance: CARBOPLATIN
     Indication: Fallopian tube cancer
     Dosage: FREQUENCY : ONCE;?
     Route: 041
     Dates: start: 20221102, end: 20221102
  2. CARBOPLATIN [Suspect]
     Active Substance: CARBOPLATIN
     Indication: Drug hypersensitivity

REACTIONS (7)
  - Infusion related reaction [None]
  - Dyspnoea [None]
  - Chest pain [None]
  - Tachycardia [None]
  - Euphoric mood [None]
  - Rash [None]
  - Rash [None]

NARRATIVE: CASE EVENT DATE: 20221102
